FAERS Safety Report 11672041 (Version 1)
Quarter: 2015Q4

REPORT INFORMATION
  Report Type: Report from Study
  Country: US (occurrence: US)
  Receive Date: 20151028
  Receipt Date: 20151028
  Transmission Date: 20160304
  Serious: No
  Sender: FDA-Public Use
  Company Number: PHEH2014US023103

PATIENT
  Age: 54 Year
  Sex: Male

DRUGS (2)
  1. MYFORTIC [Suspect]
     Active Substance: MYCOPHENOLATE SODIUM
     Dosage: 900 UNK, UNK
     Route: 048
  2. MYFORTIC [Suspect]
     Active Substance: MYCOPHENOLATE SODIUM
     Indication: RENAL TRANSPLANT
     Dosage: 180 MG, BID (5 TABS TWICE A DAY)
     Route: 048

REACTIONS (6)
  - Pain [Unknown]
  - Dysphonia [Unknown]
  - Nasopharyngitis [Unknown]
  - Overdose [Unknown]
  - Malaise [Unknown]
  - Asthma [Unknown]

NARRATIVE: CASE EVENT DATE: 20150611
